FAERS Safety Report 7337747-3 (Version None)
Quarter: 2011Q1

REPORT INFORMATION
  Report Type: 
  Country: None (occurrence: None)
  Receive Date: 20110308
  Receipt Date: 20110302
  Transmission Date: 20110831
  Serious: Yes (Death, Other)
  Sender: FDA-Public Use
  Company Number: US-AMGEN-USASP2011011852

PATIENT
  Age: 81 Year
  Sex: Female

DRUGS (2)
  1. NPLATE [Suspect]
     Indication: IDIOPATHIC THROMBOCYTOPENIC PURPURA
     Dates: start: 20110223
  2. CORTICOSTEROIDS [Concomitant]
     Dosage: UNK

REACTIONS (7)
  - STAPHYLOCOCCAL INFECTION [None]
  - RENAL FAILURE [None]
  - INTESTINAL ISCHAEMIA [None]
  - POST PROCEDURAL COMPLICATION [None]
  - SEPSIS [None]
  - PANCYTOPENIA [None]
  - MARROW HYPERPLASIA [None]
